FAERS Safety Report 10270975 (Version 1)
Quarter: 2014Q1

REPORT INFORMATION
  Report Type: Spontaneous
  Country: US (occurrence: None)
  Receive Date: 20140306
  Receipt Date: 20140306
  Transmission Date: 20141002
  Serious: Yes (Hospitalization)
  Sender: FDA-Public Use
  Company Number: 163-21880-13082409

PATIENT
  Age: 68 Year
  Sex: Male

DRUGS (7)
  1. REVLIMID (LENALIDOMIDE) (CAPSULES) [Suspect]
     Indication: CHRONIC LYMPHOCYTIC LEUKAEMIA
     Dosage: 10 MG, 21 IN 21 D, PO
     Route: 048
     Dates: start: 20130722
  2. LEVAQUIN (LEVOFLOXACIN) (UNKNOWN) [Concomitant]
  3. DIGOXIN (DIGOXIN) (UNKNOWN) (DIGOXIN) [Concomitant]
  4. COLACE (DOCUSATE SODIUM) (UNKNOWN) [Concomitant]
  5. BACTRIM (BACTRIM) (UNKNOWN) [Concomitant]
  6. AMBIEN (ZOLPIDEM TARTRATE) (UNKNOWN) [Concomitant]
  7. ACYCLOVIR (ACICLOVIR) (UNKNOWN) [Concomitant]

REACTIONS (2)
  - Fungal infection [None]
  - Pyrexia [None]
